FAERS Safety Report 18440538 (Version 1)
Quarter: 2020Q4

REPORT INFORMATION
  Report Type: Spontaneous
  Country: US (occurrence: US)
  Receive Date: 20201029
  Receipt Date: 20201029
  Transmission Date: 20210114
  Serious: No
  Sender: FDA-Public Use
  Company Number: US-TEVA-2020-US-1843761

PATIENT
  Age: 62 Year
  Sex: Female
  Weight: 46.27 kg

DRUGS (3)
  1. BUPRENORPHINE TEVA [Suspect]
     Active Substance: BUPRENORPHINE
     Indication: PAIN
     Route: 062
  2. GABAPENTIN. [Concomitant]
     Active Substance: GABAPENTIN
     Dosage: 300MG CAPSULES; TWO BY MOUTH THREE TIMES A DAY
     Route: 048
     Dates: start: 201804
  3. CYMBALTA [Concomitant]
     Active Substance: DULOXETINE HYDROCHLORIDE
     Indication: PELVIC PAIN
     Dosage: 20MG CAPSULES; ONCE IN THE MORNING
     Dates: start: 202009

REACTIONS (1)
  - Drug ineffective [Unknown]
